FAERS Safety Report 15656116 (Version 1)
Quarter: 2018Q4

REPORT INFORMATION
  Report Type: Spontaneous
  Country: US (occurrence: US)
  Receive Date: 20181126
  Receipt Date: 20181126
  Transmission Date: 20190205
  Serious: Yes (Hospitalization, Other)
  Sender: FDA-Public Use
  Company Number: US-PFIZER INC-2016431884

PATIENT
  Age: 87 Year
  Sex: Female
  Weight: 47.17 kg

DRUGS (8)
  1. ESTRING [Suspect]
     Active Substance: ESTRADIOL
     Indication: ATROPHIC VULVOVAGINITIS
     Dosage: 2 MG, UNK
     Route: 067
     Dates: start: 20160909
  2. ESTRING [Suspect]
     Active Substance: ESTRADIOL
     Indication: BLADDER PROLAPSE
  3. BAYER ASPIRIN [Concomitant]
     Active Substance: ASPIRIN
     Indication: CARDIAC DISORDER
     Dosage: 81 MG, 1X/DAY
     Route: 048
  4. ESTRING [Suspect]
     Active Substance: ESTRADIOL
     Indication: CYSTOCELE
     Dosage: 2 MG, EVERY 3 MONTHS
  5. PREMARIN [Concomitant]
     Active Substance: ESTROGENS, CONJUGATED
     Dosage: 0.625 MG, 1X/DAY
  6. ISOSORBIDE MONOER [Concomitant]
     Indication: CARDIAC DISORDER
     Dosage: 30 MG, 1X/DAY
     Route: 048
  7. ATENOLOL. [Concomitant]
     Active Substance: ATENOLOL
     Indication: CARDIAC DISORDER
     Dosage: 25 MG, 1X/DAY
     Route: 048
  8. AMLODIPINE BESILATE [Concomitant]
     Active Substance: AMLODIPINE BESYLATE
     Indication: HYPERTENSION
     Dosage: 5 MG, 1X/DAY
     Route: 048

REACTIONS (5)
  - Fall [Unknown]
  - Urinary tract infection [Unknown]
  - Dizziness [Unknown]
  - Loss of consciousness [Unknown]
  - Vulvovaginal discomfort [Recovering/Resolving]

NARRATIVE: CASE EVENT DATE: 201811
